FAERS Safety Report 24943676 (Version 1)
Quarter: 2025Q1

REPORT INFORMATION
  Report Type: Report from Study
  Country: US (occurrence: US)
  Receive Date: 20250207
  Receipt Date: 20250207
  Transmission Date: 20250409
  Serious: Yes (Hospitalization, Other)
  Sender: MYLAN
  Company Number: US-MYLANLABS-2025M1010579

PATIENT
  Sex: Female

DRUGS (2)
  1. ATORVASTATIN [Suspect]
     Active Substance: ATORVASTATIN
     Indication: Product used for unknown indication
     Route: 065
  2. VYNDAMAX [Suspect]
     Active Substance: TAFAMIDIS
     Indication: Product used for unknown indication
     Dosage: 61 MILLIGRAM, QD (DAILY)
     Route: 048

REACTIONS (10)
  - Dyspnoea [Unknown]
  - Chest pain [Unknown]
  - Amyloidosis [Unknown]
  - Pulmonary oedema [Unknown]
  - Memory impairment [Unknown]
  - Generalised oedema [Unknown]
  - Palpitations [Unknown]
  - Oedema peripheral [Unknown]
  - Fatigue [Unknown]
  - Product dose omission issue [Unknown]
